FAERS Safety Report 5045983-4 (Version None)
Quarter: 2006Q3

REPORT INFORMATION
  Report Type: 
  Country: None (occurrence: None)
  Receive Date: 20060710
  Receipt Date: 20060630
  Transmission Date: 20061208
  Serious: Yes (Congenital Anomaly)
  Sender: FDA-Public Use
  Company Number: FR-JNJFOC-20060700193

PATIENT
  Sex: Male

DRUGS (5)
  1. SEMAP [Suspect]
     Indication: DRUG EXPOSURE DURING PREGNANCY
  2. HALOPERIDOL [Suspect]
     Indication: DRUG EXPOSURE DURING PREGNANCY
     Route: 064
  3. VALIUM [Concomitant]
  4. FLUANXOL [Concomitant]
  5. LARGACTIL [Concomitant]

REACTIONS (3)
  - ABNORMAL PALMAR/PLANTAR CREASES [None]
  - DYSMORPHISM [None]
  - PSYCHOMOTOR RETARDATION [None]
